FAERS Safety Report 23229540 (Version 2)
Quarter: 2024Q2

REPORT INFORMATION
  Report Type: Spontaneous
  Country: US (occurrence: None)
  Receive Date: 20231127
  Receipt Date: 20240405
  Transmission Date: 20240716
  Serious: Yes (Other)
  Sender: FDA-Public Use
  Company Number: US-ROCHE-3461385

PATIENT
  Sex: Male

DRUGS (1)
  1. MOSUNETUZUMAB [Suspect]
     Active Substance: MOSUNETUZUMAB
     Indication: Follicular lymphoma refractory
     Route: 065

REACTIONS (1)
  - Skin exfoliation [Unknown]
